FAERS Safety Report 8345779-1 (Version None)
Quarter: 2012Q2

REPORT INFORMATION
  Report Type: 
  Country: None (occurrence: None)
  Receive Date: 20120508
  Receipt Date: 20120425
  Transmission Date: 20120825
  Serious: Yes (Congenital Anomaly)
  Sender: FDA-Public Use
  Company Number: GB-MYLANLABS-2012S1008632

PATIENT

DRUGS (1)
  1. AZATHIOPRINE [Suspect]
     Route: 064

REACTIONS (6)
  - DEVELOPMENTAL DELAY [None]
  - BRUGADA SYNDROME [None]
  - TALIPES [None]
  - CONVULSION [None]
  - CLEFT PALATE [None]
  - MATERNAL EXPOSURE DURING PREGNANCY [None]
